FAERS Safety Report 6628845-8 (Version None)
Quarter: 2010Q1

REPORT INFORMATION
  Report Type: 
  Country: None (occurrence: None)
  Receive Date: 20100311
  Receipt Date: 20100226
  Transmission Date: 20100710
  Serious: No
  Sender: FDA-Public Use
  Company Number: US-B.I. PHARMACEUTICALS,INC./RIDGEFIELD-2010-BP-02423BP

PATIENT
  Sex: Female

DRUGS (11)
  1. SPIRIVA [Suspect]
     Indication: CHRONIC OBSTRUCTIVE PULMONARY DISEASE
     Dosage: 18 MCG
     Route: 055
     Dates: start: 20100218
  2. SPIRIVA [Suspect]
     Indication: EMPHYSEMA
  3. DUONEB [Concomitant]
     Indication: CHRONIC OBSTRUCTIVE PULMONARY DISEASE
  4. DUONEB [Concomitant]
     Indication: EMPHYSEMA
  5. CLONIDINE [Concomitant]
     Indication: HYPERTENSION
  6. BENICAR [Concomitant]
     Indication: HYPERTENSION
  7. VERAPAMIL [Concomitant]
     Indication: HYPERTENSION
  8. DONNATAL [Concomitant]
     Indication: IRRITABLE BOWEL SYNDROME
  9. VITAMIN TAB [Concomitant]
     Indication: PROPHYLAXIS
  10. CALCIUM [Concomitant]
     Indication: PROPHYLAXIS
  11. FISH OIL [Concomitant]
     Indication: PROPHYLAXIS

REACTIONS (3)
  - PRODUCTIVE COUGH [None]
  - THERAPEUTIC RESPONSE DECREASED [None]
  - VISION BLURRED [None]
